FAERS Safety Report 7315406-0 (Version None)
Quarter: 2011Q1

REPORT INFORMATION
  Report Type: 
  Country: None (occurrence: None)
  Receive Date: 20110225
  Receipt Date: 20110223
  Transmission Date: 20110831
  Serious: Yes (Death, Hospitalization)
  Sender: FDA-Public Use
  Company Number: A0914189A

PATIENT
  Sex: Female

DRUGS (1)
  1. AVANDIA [Suspect]
     Route: 048
     Dates: start: 20030101, end: 20040101

REACTIONS (4)
  - DEATH [None]
  - HEPATIC FAILURE [None]
  - INJURY [None]
  - CARDIAC FAILURE CONGESTIVE [None]
